FAERS Safety Report 23300645 (Version 1)
Quarter: 2023Q4

REPORT INFORMATION
  Report Type: Spontaneous
  Country: PK (occurrence: PK)
  Receive Date: 20231215
  Receipt Date: 20231215
  Transmission Date: 20240110
  Serious: Yes (Death)
  Sender: FDA-Public Use
  Company Number: PK-002147023-NVSC2023PK266072

PATIENT
  Age: 72 Year
  Sex: Female
  Weight: 62 kg

DRUGS (2)
  1. KISQALI [Suspect]
     Active Substance: RIBOCICLIB
     Indication: Hormone receptor positive HER2 negative breast cancer
     Dosage: 600 MG, QD (600MG OD FOR 21 DAYS AND 7 DAYS OFF)
     Route: 048
     Dates: start: 20230209, end: 20230814
  2. KISQALI [Suspect]
     Active Substance: RIBOCICLIB
     Dosage: 600 MG, QD (600 MG ONCE A DAY FOR 21 DAYS THEN 7 DAYS OFF)
     Route: 048
     Dates: end: 20230818

REACTIONS (1)
  - Death [Fatal]

NARRATIVE: CASE EVENT DATE: 20231117
